FAERS Safety Report 8114282 (Version 3)
Quarter: 2013Q2

REPORT INFORMATION
  Report Type: Spontaneous
  Country: US (occurrence: US)
  Receive Date: 20110831
  Receipt Date: 20130424
  Transmission Date: 20140414
  Serious: Yes (Hospitalization, Other)
  Sender: FDA-Public Use
  Company Number: US-PFIZER INC-2011199115

PATIENT
  Age: 32 Year
  Sex: Female

DRUGS (14)
  1. DILANTIN KAPSEAL [Suspect]
     Indication: CONVULSION
     Dosage: 100 MG, UNK
     Route: 048
  2. DILANTIN KAPSEAL [Suspect]
     Dosage: UNK
     Route: 048
     Dates: start: 20030815, end: 20030815
  3. DILANTIN KAPSEAL [Suspect]
     Dosage: 200 MG, 2X/DAY
     Route: 048
     Dates: start: 20030815, end: 20030920
  4. ZOLOFT [Concomitant]
     Indication: DEPRESSION
     Dosage: 100 MG, 1X/DAY
  5. AVANDIA [Concomitant]
     Indication: TYPE 2 DIABETES MELLITUS
     Dosage: 8 MG, 1X/DAY IN THE MORNING
  6. GLUCOTROL XL [Concomitant]
     Indication: TYPE 2 DIABETES MELLITUS
     Dosage: 10 MG, 1X/DAY, IN THE MORNING
  7. COUMADIN [Concomitant]
     Indication: SUPERIOR SAGITTAL SINUS THROMBOSIS
     Dosage: 5 MG, 1X/DAY
     Dates: start: 200308, end: 200412
  8. TOPAMAX [Concomitant]
     Indication: CONVULSION
     Dosage: 25 MG, 2X/DAY
     Dates: start: 20030815, end: 2003
  9. TOPAMAX [Concomitant]
     Dosage: 50 MG, 2X/DAY
     Dates: start: 20030908, end: 2003
  10. TOPAMAX [Concomitant]
     Dosage: 15 MG, 2X/DAY
     Dates: start: 2003, end: 20030910
  11. DIAMOX [Concomitant]
     Indication: CONVULSION
     Dosage: 500 MG, 2X/DAY
     Dates: start: 200308, end: 20030910
  12. TYLENOL [Concomitant]
     Indication: PAIN
     Dosage: UNK, AS NEEDED
  13. IRON SULFATE [Concomitant]
     Dosage: 325 MG, 3X/DAY
  14. VITAMIN C [Concomitant]
     Dosage: 500 MG, 3X/DAY

REACTIONS (1)
  - Stevens-Johnson syndrome [Recovering/Resolving]
